FAERS Safety Report 8925606 (Version 1)
Quarter: 2012Q4

REPORT INFORMATION
  Report Type: 
  Country: FR (occurrence: FR)
  Receive Date: 20121126
  Receipt Date: 20121126
  Transmission Date: 20130627
  Serious: Yes (Life-Threatening, Hospitalization)
  Sender: FDA-Public Use
  Company Number: FR-SANOFI-AVENTIS-2012SA083970

PATIENT
  Age: 81 Year
  Sex: Male

DRUGS (5)
  1. PLAVIX [Suspect]
     Indication: PREVENTION
     Route: 048
     Dates: end: 20121019
  2. COUMADINE [Suspect]
     Indication: ATRIAL FIBRILLATION
     Route: 048
     Dates: end: 20121019
  3. TAHOR [Concomitant]
  4. ODRIK [Concomitant]
  5. FERROUS SULFATE [Concomitant]

REACTIONS (2)
  - International normalised ratio increased [Recovered/Resolved]
  - Rectal haemorrhage [Recovered/Resolved]
